FAERS Safety Report 13930133 (Version 1)
Quarter: 2017Q3

REPORT INFORMATION
  Report Type: Spontaneous
  Country: FR (occurrence: FR)
  Receive Date: 20170901
  Receipt Date: 20170901
  Transmission Date: 20171127
  Serious: Yes (Hospitalization)
  Sender: FDA-Public Use
  Company Number: FR-PFIZER INC-2017374586

PATIENT
  Age: 63 Year
  Sex: Male

DRUGS (10)
  1. TAHOR [Concomitant]
     Active Substance: ATORVASTATIN CALCIUM
  2. DOLIPRANE [Suspect]
     Active Substance: ACETAMINOPHEN
     Indication: PAIN
     Dosage: 1 DF, EVERY 6 HOURS
     Route: 048
     Dates: end: 20170301
  3. TOPALGIC LP [Concomitant]
     Active Substance: TRAMADOL
     Dosage: UNK
     Dates: end: 20170213
  4. LYRICA [Concomitant]
     Active Substance: PREGABALIN
     Dosage: UNK
     Dates: end: 20170223
  5. BISOPROLOL [Concomitant]
     Active Substance: BISOPROLOL
  6. FRAGMINE [Suspect]
     Active Substance: DALTEPARIN SODIUM
     Indication: THROMBOSIS PROPHYLAXIS
     Dosage: 1 DF, 1X/DAY
     Route: 058
     Dates: start: 20170117, end: 20170318
  7. MELOXICAM SANDOZ [Suspect]
     Active Substance: MELOXICAM
     Indication: ANKYLOSING SPONDYLITIS
     Dosage: 1 DF, 1X/DAY
     Route: 048
     Dates: start: 20170131, end: 20170303
  8. RIVOTRIL [Concomitant]
     Active Substance: CLONAZEPAM
     Dosage: UNK
     Dates: end: 20170223
  9. EUPANTOL [Concomitant]
     Active Substance: PANTOPRAZOLE SODIUM
     Dosage: UNK
  10. KARDEGIC [Concomitant]
     Active Substance: ASPIRIN LYSINE

REACTIONS (2)
  - Pruritus [Recovered/Resolved]
  - Eczema [Recovered/Resolved]

NARRATIVE: CASE EVENT DATE: 20170213
